FAERS Safety Report 24967067 (Version 1)
Quarter: 2025Q1

REPORT INFORMATION
  Report Type: Spontaneous
  Country: AR (occurrence: AR)
  Receive Date: 20250213
  Receipt Date: 20250213
  Transmission Date: 20250408
  Serious: Yes (Other)
  Sender: PRINSTON PHARMACEUTICAL
  Company Number: AR-PRINSTON PHARMACEUTICAL INC.-2025PRN00040

PATIENT
  Age: 43 Year
  Sex: Male

DRUGS (5)
  1. ROPINIROLE [Suspect]
     Active Substance: ROPINIROLE
     Indication: Parkinson^s disease
  2. CLONAZEPAM [Concomitant]
     Active Substance: CLONAZEPAM
     Indication: Parkinson^s disease
  3. CARBIDOPA\LEVODOPA [Concomitant]
     Active Substance: CARBIDOPA\LEVODOPA
     Indication: Parkinson^s disease
  4. RASAGILINE [Concomitant]
     Active Substance: RASAGILINE
     Indication: Parkinson^s disease
  5. PAROXETINE [Concomitant]
     Active Substance: PAROXETINE

REACTIONS (2)
  - Dopamine agonist withdrawal syndrome [Unknown]
  - Suicide attempt [Unknown]
